FAERS Safety Report 7956698-4 (Version None)
Quarter: 2011Q4

REPORT INFORMATION
  Report Type: 
  Country: None (occurrence: None)
  Receive Date: 20111205
  Receipt Date: 20111129
  Transmission Date: 20120403
  Serious: Yes (Hospitalization)
  Sender: FDA-Public Use
  Company Number: FR-ABBOTT-11P-056-0879058-00

PATIENT
  Age: 67 Year
  Sex: Male

DRUGS (4)
  1. PERINDOPRIL [Suspect]
     Indication: HYPERTENSION
     Dosage: REGIMEN #1
     Dates: start: 20010101
  2. METFORMIN HCL [Concomitant]
     Indication: PRODUCT USED FOR UNKNOWN INDICATION
     Dates: start: 19960101
  3. DICUMAROL [Concomitant]
     Indication: PRODUCT USED FOR UNKNOWN INDICATION
  4. SITAGLIPTIN [Suspect]
     Indication: TYPE 2 DIABETES MELLITUS

REACTIONS (3)
  - DYSPHONIA [None]
  - LARYNGEAL OEDEMA [None]
  - DYSPNOEA [None]
